FAERS Safety Report 25604236 (Version 3)
Quarter: 2025Q3

REPORT INFORMATION
  Report Type: Report from Study
  Country: CO (occurrence: CO)
  Receive Date: 20250725
  Receipt Date: 20250812
  Transmission Date: 20251021
  Serious: Yes (Life-Threatening, Hospitalization, Other)
  Sender: ABBVIE
  Company Number: CO-ABBVIE-6381151

PATIENT
  Age: 70 Year
  Sex: Female

DRUGS (8)
  1. VENETOCLAX [Suspect]
     Active Substance: VENETOCLAX
     Indication: Acute myeloid leukaemia
     Route: 048
     Dates: start: 20250124
  2. VENETOCLAX [Suspect]
     Active Substance: VENETOCLAX
     Indication: Acute myeloid leukaemia
     Dosage: (CORRESPONDING TO CYCLE #4)
     Route: 048
     Dates: start: 20250602, end: 20250608
  3. LEVOTHYROXINE [Concomitant]
     Active Substance: LEVOTHYROXINE
     Indication: Central hypothyroidism
     Route: 048
     Dates: start: 20250120
  4. LEVOTHYROXINE [Concomitant]
     Active Substance: LEVOTHYROXINE
     Indication: Central hypothyroidism
     Route: 048
     Dates: start: 20250120
  5. ACYCLOVIR [Concomitant]
     Active Substance: ACYCLOVIR
     Indication: Immune disorder prophylaxis
     Route: 048
     Dates: start: 20250120
  6. ESOMEPRAZOLE [Concomitant]
     Active Substance: ESOMEPRAZOLE
     Indication: Gastrointestinal disorder prophylaxis
     Route: 048
     Dates: start: 20250120
  7. AZACITIDINE [Suspect]
     Active Substance: AZACITIDINE
     Indication: Acute myeloid leukaemia
     Route: 058
     Dates: start: 20250602, end: 20250606
  8. MOXIFLOXACIN [Concomitant]
     Active Substance: MOXIFLOXACIN
     Indication: Product used for unknown indication

REACTIONS (3)
  - Death [Fatal]
  - Thrombophlebitis [Recovered/Resolved]
  - Haemorrhage intracranial [Recovered/Resolved]

NARRATIVE: CASE EVENT DATE: 20250629
